FAERS Safety Report 20027788 (Version 1)
Quarter: 2021Q4

REPORT INFORMATION
  Report Type: Spontaneous
  Country: JP (occurrence: JP)
  Receive Date: 20211103
  Receipt Date: 20211103
  Transmission Date: 20220303
  Serious: Yes (Other)
  Sender: FDA-Public Use
  Company Number: JP-BAYER-2021A240398

PATIENT

DRUGS (1)
  1. EYLEA [Suspect]
     Active Substance: AFLIBERCEPT
     Indication: Polypoidal choroidal vasculopathy
     Dosage: INJECTED EVERY OTHER MONTH ABOUT ONE YEAR IN LEFT EYE

REACTIONS (2)
  - Retinal vascular disorder [Unknown]
  - Chorioretinal disorder [Unknown]
